FAERS Safety Report 22177150 (Version 1)
Quarter: 2023Q2

REPORT INFORMATION
  Report Type: Spontaneous
  Country: US (occurrence: None)
  Receive Date: 20230405
  Receipt Date: 20230405
  Transmission Date: 20230721
  Serious: No
  Sender: FDA-Public Use
  Company Number: 2023A056621

PATIENT
  Sex: Male
  Weight: 90.7 kg

DRUGS (1)
  1. CRESTOR [Suspect]
     Active Substance: ROSUVASTATIN CALCIUM
     Indication: Blood cholesterol increased
     Route: 048

REACTIONS (2)
  - Spinal stenosis [Unknown]
  - Myalgia [Not Recovered/Not Resolved]
